FAERS Safety Report 15714108 (Version 1)
Quarter: 2018Q4

REPORT INFORMATION
  Report Type: Spontaneous
  Country: GB (occurrence: GB)
  Receive Date: 20181212
  Receipt Date: 20181212
  Transmission Date: 20190205
  Serious: Yes (Other)
  Sender: FDA-Public Use
  Company Number: GB-NOVOPROD-637040

PATIENT
  Age: 71 Year
  Sex: Male
  Weight: 102 kg

DRUGS (11)
  1. NOVORAPID [Suspect]
     Active Substance: INSULIN ASPART
     Indication: TYPE 2 DIABETES MELLITUS
     Dosage: 72 U, QD (THREE TIMES DAILY (TO BE USED AS DIRECTED))
     Route: 058
     Dates: start: 2015
  2. METFORMIN [Concomitant]
     Active Substance: METFORMIN HYDROCHLORIDE
     Dosage: 1 TAB, BID
  3. DOVOBET [Concomitant]
     Active Substance: BETAMETHASONE\CALCIPOTRIENE
     Dosage: APPLY TO AFFECTED AREAS 1-2 TIMES PER WEEK
  4. ASPIRIN                            /00002701/ [Concomitant]
     Active Substance: ASPIRIN
     Dosage: 1 TAB, QD (EACH MORNING)
  5. CETIRIZINE [Concomitant]
     Active Substance: CETIRIZINE HYDROCHLORIDE
     Dosage: 1 TAB, QD
  6. AMLODIPINE [Concomitant]
     Active Substance: AMLODIPINE BESYLATE
     Dosage: 1 TAB, QD (EACH MORNING)
  7. INDAPAMIDE. [Concomitant]
     Active Substance: INDAPAMIDE
     Dosage: 1 TAB, QD
  8. CICLOSPORIN [Concomitant]
     Active Substance: CYCLOSPORINE
     Indication: ERYTHRODERMIC PSORIASIS
  9. LANTUS [Concomitant]
     Active Substance: INSULIN GLARGINE
     Dosage: USE AS DIRECTED
  10. DOUBLEBASE [Concomitant]
     Active Substance: ISOPROPYL MYRISTATE\PARAFFIN
  11. CANDESARTAN. [Concomitant]
     Active Substance: CANDESARTAN
     Dosage: IN THE MORNING

REACTIONS (5)
  - Gout [Unknown]
  - Myocardial ischaemia [Unknown]
  - Portal hypertensive gastropathy [Unknown]
  - Varices oesophageal [Unknown]
  - Hepatic cirrhosis [Unknown]

NARRATIVE: CASE EVENT DATE: 20151211
